FAERS Safety Report 8965430 (Version 1)
Quarter: 2012Q4

REPORT INFORMATION
  Report Type: Report from Study
  Country: GB (occurrence: GB)
  Receive Date: 20121213
  Receipt Date: 20121213
  Transmission Date: 20130627
  Serious: Yes (Hospitalization)
  Sender: FDA-Public Use
  Company Number: GB-ROCHE-1168145

PATIENT
  Sex: Female

DRUGS (2)
  1. RITUXIMAB [Suspect]
     Indication: RHEUMATOID ARTHRITIS
     Dosage: last dose taken prior to SAE 01/Nov/2011
     Route: 065
     Dates: start: 20111018
  2. SULFASALAZINE [Concomitant]
     Indication: PREMEDICATION

REACTIONS (2)
  - Pneumonia [Unknown]
  - Pericardial effusion [Unknown]
